FAERS Safety Report 5922312-2 (Version None)
Quarter: 2008Q4

REPORT INFORMATION
  Report Type: 
  Country: None (occurrence: None)
  Receive Date: 20081017
  Receipt Date: 20081007
  Transmission Date: 20090506
  Serious: Yes (Death, Hospitalization, Other)
  Sender: FDA-Public Use
  Company Number: US-ELI_LILLY_AND_COMPANY-US200810001668

PATIENT
  Age: 76 Year
  Sex: Female
  Weight: 72.562 kg

DRUGS (1)
  1. BYETTA [Suspect]
     Indication: DIABETES MELLITUS
     Dosage: UNK, UNKNOWN
     Dates: start: 20060520, end: 20070420

REACTIONS (5)
  - ABDOMINAL PAIN [None]
  - DEATH [None]
  - HEPATIC CIRRHOSIS [None]
  - NAUSEA [None]
  - WEIGHT DECREASED [None]
